FAERS Safety Report 5673808-2 (Version None)
Quarter: 2008Q2

REPORT INFORMATION
  Report Type: 
  Country: None (occurrence: None)
  Receive Date: 20080226
  Receipt Date: 20070611
  Transmission Date: 20081010
  Serious: Yes (Other)
  Sender: FDA-Public Use
  Company Number: 501914

PATIENT
  Sex: Male

DRUGS (1)
  1. ACCUTANE [Suspect]
     Indication: DRUG USE FOR UNKNOWN INDICATION
     Dates: start: 20010615, end: 20020615

REACTIONS (6)
  - ABDOMINAL PAIN [None]
  - ADVERSE EVENT [None]
  - CROHN'S DISEASE [None]
  - GASTRITIS [None]
  - INFLAMMATORY BOWEL DISEASE [None]
  - PANCREATITIS [None]
